FAERS Safety Report 9710517 (Version 2)
Quarter: 2013Q4

REPORT INFORMATION
  Report Type: Spontaneous
  Country: FR (occurrence: US)
  Receive Date: 20131126
  Receipt Date: 20131126
  Transmission Date: 20140711
  Serious: No
  Sender: FDA-Public Use
  Company Number: US-BRISTOL-MYERS SQUIBB COMPANY-18851733

PATIENT
  Age: 65 Year
  Sex: Male

DRUGS (3)
  1. BYETTA PEN DISPOSABLE [Suspect]
     Indication: DIABETES MELLITUS
     Route: 058
  2. BYDUREON [Suspect]
     Indication: TYPE 2 DIABETES MELLITUS
     Dosage: INTER ON JAN13
     Route: 058
  3. METFORMINE [Suspect]

REACTIONS (1)
  - Drug ineffective [Unknown]
